FAERS Safety Report 7540014-6 (Version None)
Quarter: 2011Q2

REPORT INFORMATION
  Report Type: 
  Country: None (occurrence: None)
  Receive Date: 20110610
  Receipt Date: 20110607
  Transmission Date: 20111010
  Serious: Yes (Life-Threatening)
  Sender: FDA-Public Use
  Company Number: CN-SANOFI-AVENTIS-2011SA034761

PATIENT

DRUGS (5)
  1. OXALIPLATIN [Suspect]
     Indication: COLON CANCER
     Dosage: ROUTE: I.V. GTT; OXALIPLATIN 250 MG DILUTED BY 5% GLUCOSE INJECTION
     Route: 042
  2. CAPECITABINE [Suspect]
     Indication: COLON CANCER
     Route: 065
  3. GEMCITABINE [Concomitant]
     Indication: COLON CANCER
     Route: 065
  4. LEUCOVORIN CALCIUM [Concomitant]
     Indication: COLON CANCER
     Dosage: AS FOLFOX REGIMEN
  5. FLUOROURACIL [Concomitant]
     Indication: COLON CANCER
     Dosage: AS FOLFOX REGIMEN

REACTIONS (7)
  - UNRESPONSIVE TO STIMULI [None]
  - CARDIAC ARREST [None]
  - SYNCOPE [None]
  - HYPERHIDROSIS [None]
  - FLUSHING [None]
  - HYPERSENSITIVITY [None]
  - HYPOAESTHESIA [None]
